FAERS Safety Report 17122147 (Version 1)
Quarter: 2019Q4

REPORT INFORMATION
  Report Type: Spontaneous
  Country: IT (occurrence: IT)
  Receive Date: 20191206
  Receipt Date: 20191206
  Transmission Date: 20200122
  Serious: Yes (Life-Threatening, Hospitalization, Other)
  Sender: FDA-Public Use
  Company Number: IT-MYLANLABS-2019M1120362

PATIENT
  Age: 62 Year
  Sex: Male

DRUGS (2)
  1. IMATINIB. [Suspect]
     Active Substance: IMATINIB MESYLATE
     Indication: GRAFT VERSUS HOST DISEASE IN SKIN
     Dosage: 100 MG, QD
  2. SOTALOL. [Concomitant]
     Active Substance: SOTALOL
     Dosage: UNK

REACTIONS (10)
  - Blood lactic acid increased [Recovering/Resolving]
  - Blood pressure systolic inspiratory decreased [Recovering/Resolving]
  - Organ failure [Unknown]
  - Poor peripheral circulation [Recovering/Resolving]
  - Off label use [Unknown]
  - Intentional product misuse [Unknown]
  - Cardiac tamponade [Recovering/Resolving]
  - Anuria [Recovering/Resolving]
  - Pericardial effusion [Unknown]
  - Condition aggravated [Unknown]
